FAERS Safety Report 5985231-1 (Version None)
Quarter: 2008Q4

REPORT INFORMATION
  Report Type: 
  Country: None (occurrence: None)
  Receive Date: 20081203
  Receipt Date: 20081120
  Transmission Date: 20090506
  Serious: Yes (Hospitalization)
  Sender: FDA-Public Use
  Company Number: 2008-187309-NL

PATIENT
  Age: 20 Year
  Sex: Male

DRUGS (1)
  1. REMERON [Suspect]
     Dates: start: 20081114, end: 20081119

REACTIONS (2)
  - DELIRIUM [None]
  - HYPONATRAEMIA [None]
